FAERS Safety Report 8799533 (Version 1)
Quarter: 2012Q4

REPORT INFORMATION
  Report Type: Spontaneous
  Country: US (occurrence: None)
  Receive Date: 20120918
  Receipt Date: 20120918
  Transmission Date: 20130627
  Serious: Yes (Other)
  Sender: FDA-Public Use
  Company Number: None

PATIENT
  Age: 5 Year
  Sex: Female
  Weight: 24.04 kg

DRUGS (1)
  1. SINGULAIR [Suspect]
     Indication: MULTIPLE ALLERGIES
     Dosage: 1 pill Daily po
     Route: 048
     Dates: start: 20090817, end: 20120910

REACTIONS (3)
  - Skin odour abnormal [None]
  - Hair growth abnormal [None]
  - Precocious puberty [None]
